FAERS Safety Report 20002741 (Version 1)
Quarter: 2021Q4

REPORT INFORMATION
  Report Type: Spontaneous
  Country: US (occurrence: US)
  Receive Date: 20211028
  Receipt Date: 20211028
  Transmission Date: 20220303
  Serious: No
  Sender: FDA-Public Use
  Company Number: US-ALMIRALL, LLC-2021AQU000328

PATIENT

DRUGS (2)
  1. SEYSARA [Suspect]
     Active Substance: SARECYCLINE HYDROCHLORIDE
     Indication: Acne
     Dosage: 60 MG, QD
     Route: 048
     Dates: start: 2021, end: 2021
  2. SEYSARA [Suspect]
     Active Substance: SARECYCLINE HYDROCHLORIDE
     Dosage: 60 MG, QD
     Route: 048
     Dates: start: 2021, end: 20210719

REACTIONS (5)
  - Hypersomnia [Unknown]
  - Blood urine present [Unknown]
  - Menstruation delayed [Unknown]
  - Menstruation irregular [Unknown]
  - Dizziness [Unknown]
